FAERS Safety Report 21306050 (Version 2)
Quarter: 2022Q4

REPORT INFORMATION
  Report Type: Report from Study
  Country: US (occurrence: None)
  Receive Date: 20220908
  Receipt Date: 20221020
  Transmission Date: 20230112
  Serious: Yes (Life-Threatening)
  Sender: FDA-Public Use
  Company Number: 2022A306897

PATIENT
  Sex: Female

DRUGS (1)
  1. CALQUENCE [Suspect]
     Active Substance: ACALABRUTINIB
     Route: 048

REACTIONS (2)
  - Fatigue [Not Recovered/Not Resolved]
  - Diarrhoea [Not Recovered/Not Resolved]
